FAERS Safety Report 5698038-X (Version None)
Quarter: 2008Q2

REPORT INFORMATION
  Report Type: 
  Country: None (occurrence: None)
  Receive Date: 20080408
  Receipt Date: 20080327
  Transmission Date: 20081010
  Serious: Yes (Hospitalization)
  Sender: FDA-Public Use
  Company Number: FR-ROCHE-552031

PATIENT
  Sex: Female
  Weight: 62 kg

DRUGS (11)
  1. ROCEPHIN [Suspect]
     Dosage: FORM: INJECTABLE SOLUTION
     Route: 042
     Dates: start: 20080118, end: 20080208
  2. CHOLECALCIFEROL [Suspect]
     Indication: DRUG USE FOR UNKNOWN INDICATION
     Route: 048
     Dates: end: 20080212
  3. FELDENE [Suspect]
     Indication: DRUG USE FOR UNKNOWN INDICATION
     Dosage: STOPPED 8 TO 15 DAYS BEFORE THE INTRODUCTION OF CEFTRIAXONE
     Route: 048
  4. CALCIUM [Suspect]
     Indication: DRUG USE FOR UNKNOWN INDICATION
     Route: 065
     Dates: end: 20080212
  5. LERCAN [Suspect]
     Indication: DRUG USE FOR UNKNOWN INDICATION
     Route: 048
     Dates: end: 20080212
  6. KARDEGIC [Suspect]
     Indication: DRUG USE FOR UNKNOWN INDICATION
     Route: 048
     Dates: end: 20080212
  7. COTAREG [Suspect]
     Indication: DRUG USE FOR UNKNOWN INDICATION
     Route: 048
     Dates: end: 20080212
  8. COTAREG [Suspect]
     Route: 048
     Dates: end: 20080212
  9. INIPOMP [Concomitant]
  10. VITAMINE D [Concomitant]
  11. 1 CONCOMITANT DRUG [Concomitant]
     Dosage: SYSTEMIC CORTICOID; DOSAGE TAPERED AND THEN FINALLY STOPPED
     Dates: end: 20080202

REACTIONS (2)
  - GRANULOMA [None]
  - TUBULOINTERSTITIAL NEPHRITIS [None]
